FAERS Safety Report 11329817 (Version 3)
Quarter: 2015Q3

REPORT INFORMATION
  Report Type: Report from Study
  Country: PY (occurrence: PY)
  Receive Date: 20150803
  Receipt Date: 20150924
  Transmission Date: 20151125
  Serious: Yes (Death, Hospitalization)
  Sender: FDA-Public Use
  Company Number: PHHY2015PY092947

PATIENT
  Age: 31 Year
  Sex: Male
  Weight: 68 kg

DRUGS (1)
  1. GLIVEC [Suspect]
     Active Substance: IMATINIB MESYLATE
     Indication: CHRONIC MYELOID LEUKAEMIA
     Dosage: 400 MG, UNK
     Route: 065
     Dates: start: 20150604

REACTIONS (9)
  - General physical health deterioration [Unknown]
  - Splenomegaly [Unknown]
  - Oral herpes [Unknown]
  - Septic shock [Fatal]
  - Dyspnoea [Fatal]
  - Myalgia [Fatal]
  - Pyrexia [Fatal]
  - Sepsis [Fatal]
  - Pneumonia pneumococcal [Fatal]

NARRATIVE: CASE EVENT DATE: 20150718
